FAERS Safety Report 15535448 (Version 4)
Quarter: 2018Q4

REPORT INFORMATION
  Report Type: Spontaneous
  Country: BE (occurrence: BE)
  Receive Date: 20181022
  Receipt Date: 20181112
  Transmission Date: 20190205
  Serious: Yes (Other)
  Sender: FDA-Public Use
  Company Number: BE-BAUSCH-BL-2018-029157

PATIENT
  Sex: Female

DRUGS (3)
  1. ASAFLOW [Concomitant]
     Active Substance: ASPIRIN
     Indication: PRODUCT USED FOR UNKNOWN INDICATION
  2. MEPROBAMAAT [Concomitant]
     Indication: PRODUCT USED FOR UNKNOWN INDICATION
  3. KYNTHEUM [Suspect]
     Active Substance: BRODALUMAB
     Indication: PSORIASIS
     Route: 065
     Dates: start: 20180730

REACTIONS (3)
  - Muscular weakness [Unknown]
  - Cerebral microangiopathy [Unknown]
  - Neuromyopathy [Unknown]
